FAERS Safety Report 6253545-6 (Version None)
Quarter: 2009Q3

REPORT INFORMATION
  Report Type: 
  Country: None (occurrence: None)
  Receive Date: 20090701
  Receipt Date: 20090622
  Transmission Date: 20100115
  Serious: Yes (Death, Hospitalization, Other)
  Sender: FDA-Public Use
  Company Number: US-AMGEN-QUU352604

PATIENT
  Sex: Male

DRUGS (5)
  1. ARANESP [Suspect]
     Indication: MYELODYSPLASTIC SYNDROME
  2. COUMADIN [Concomitant]
  3. IRON [Concomitant]
  4. VITAMIN B-12 [Concomitant]
  5. FOLIC ACID [Concomitant]

REACTIONS (3)
  - ANAEMIA [None]
  - DEATH [None]
  - SKIN INFECTION [None]
